FAERS Safety Report 10956168 (Version 1)
Quarter: 2015Q1

REPORT INFORMATION
  Report Type: Spontaneous
  Country: US (occurrence: None)
  Receive Date: 20150325
  Receipt Date: 20150325
  Transmission Date: 20150721
  Serious: Yes (Hospitalization, Other)
  Sender: FDA-Public Use
  Company Number: None

PATIENT
  Age: 32 Year
  Sex: Female

DRUGS (1)
  1. COPAXONE [Suspect]
     Active Substance: GLATIRAMER ACETATE
     Dosage: INJECTABLE
     Route: 058
     Dates: start: 20150225

REACTIONS (4)
  - Hypoaesthesia [None]
  - Paraesthesia [None]
  - Multiple sclerosis relapse [None]
  - Pain [None]

NARRATIVE: CASE EVENT DATE: 20150220
